FAERS Safety Report 16718839 (Version 1)
Quarter: 2019Q3

REPORT INFORMATION
  Report Type: Spontaneous
  Country: DE (occurrence: DE)
  Receive Date: 20190820
  Receipt Date: 20190820
  Transmission Date: 20191005
  Serious: Yes (Hospitalization)
  Sender: FDA-Public Use
  Company Number: DE-TEVA-2019-DE-1093250

PATIENT
  Age: 73 Year
  Sex: Male

DRUGS (17)
  1. VIGANTOL OI20000I.E./ML [Concomitant]
     Dosage: NK MG, 40-0-0-0, TROPFEN
  2. OLODATEROL [Concomitant]
     Active Substance: OLODATEROL
     Dosage: 2.5 MICROGRAM, 1-0-0-0
  3. IBUPROFEN. [Concomitant]
     Active Substance: IBUPROFEN
     Dosage: 600 MG, 0-0-1-0
  4. FENTANYL. [Suspect]
     Active Substance: FENTANYL
     Dosage: 12 MICROGRAM/H, 2-0-0-0
     Route: 065
  5. TORASEMID [Concomitant]
     Active Substance: TORSEMIDE
     Dosage: 5 MG, 2-0-0-0
  6. GINKGO-BILOBA-BLATTER-TROCKENEXTRAKT [Concomitant]
     Dosage: NK MG, NK
  7. AMLODIPIN [Concomitant]
     Active Substance: AMLODIPINE BESYLATE
     Dosage: 5 MG, 1-0-0-0
  8. NITROFURANTOIN. [Concomitant]
     Active Substance: NITROFURANTOIN
     Dosage: NK MG, 0-0-1-0
  9. TRIMIPRAMIN [Suspect]
     Active Substance: TRIMIPRAMINE
     Dosage: 25 MG, 0-0-3-0
  10. MUCOSOLVAN [Concomitant]
     Active Substance: AMBROXOL HYDROCHLORIDE
     Dosage: 10 ML, 1-1-0-0
  11. ELIQUIS [Concomitant]
     Active Substance: APIXABAN
     Dosage: 2.5 MG, 1-0-1-0
  12. OMEPRAZOL [Concomitant]
     Active Substance: OMEPRAZOLE
     Dosage: 40 MG, 1-0-1-0
  13. GANFORT [Concomitant]
     Active Substance: BIMATOPROST\TIMOLOL
     Dosage: NK MG, 1-0-0-0
  14. APIDRA [Concomitant]
     Active Substance: INSULIN GLULISINE
     Dosage: NK IE,
  15. RAMIPRIL. [Concomitant]
     Active Substance: RAMIPRIL
     Dosage: 5 MG, 1-0-0-0
  16. LANTUS [Concomitant]
     Active Substance: INSULIN GLARGINE
     Dosage: 18 IE, 1-0-0-0
  17. MOVICOL [Concomitant]
     Active Substance: POLYETHYLENE GLYCOL 3350\POTASSIUM CHLORIDE\SODIUM BICARBONATE\SODIUM CHLORIDE
     Dosage: NK MG, 1-0-0-0

REACTIONS (2)
  - Asthenia [Unknown]
  - Memory impairment [Unknown]
